FAERS Safety Report 11335627 (Version 1)
Quarter: 2015Q3

REPORT INFORMATION
  Report Type: Report from Study
  Country: US (occurrence: US)
  Receive Date: 20150804
  Receipt Date: 20150804
  Transmission Date: 20151125
  Serious: Yes (Hospitalization)
  Sender: FDA-Public Use
  Company Number: US-ABBVIE-15K-163-1436158-00

PATIENT
  Age: 50 Year
  Sex: Male
  Weight: 88.98 kg

DRUGS (9)
  1. HUMIRA [Suspect]
     Active Substance: ADALIMUMAB
     Route: 065
     Dates: start: 201408, end: 201408
  2. LIALDA [Suspect]
     Active Substance: MESALAMINE
     Route: 065
     Dates: start: 201506
  3. AMLODIPINE [Concomitant]
     Active Substance: AMLODIPINE BESYLATE
     Indication: HYPERTENSION
  4. TESTOSTERONE. [Concomitant]
     Active Substance: TESTOSTERONE
     Indication: BLOOD TESTOSTERONE DECREASED
  5. ATORVASTATIN [Concomitant]
     Active Substance: ATORVASTATIN
     Indication: BLOOD CHOLESTEROL INCREASED
  6. LIALDA [Suspect]
     Active Substance: MESALAMINE
     Route: 065
     Dates: start: 201504, end: 201506
  7. HUMIRA [Suspect]
     Active Substance: ADALIMUMAB
     Indication: COLITIS ULCERATIVE
     Route: 065
     Dates: start: 201408, end: 201408
  8. HUMIRA [Suspect]
     Active Substance: ADALIMUMAB
     Route: 065
     Dates: start: 201409
  9. LIALDA [Suspect]
     Active Substance: MESALAMINE
     Indication: COLITIS ULCERATIVE
     Route: 065
     Dates: end: 201504

REACTIONS (2)
  - Colitis ulcerative [Recovered/Resolved]
  - Frequent bowel movements [Recovered/Resolved]

NARRATIVE: CASE EVENT DATE: 20150618
